FAERS Safety Report 7206765-8 (Version None)
Quarter: 2010Q4

REPORT INFORMATION
  Report Type: 
  Country: None (occurrence: None)
  Receive Date: 20101217
  Receipt Date: 20101214
  Transmission Date: 20110411
  Serious: Yes (Disabling)
  Sender: FDA-Public Use
  Company Number: 2010MA005194

PATIENT
  Sex: Female

DRUGS (3)
  1. METOCLOPRAMIDE [Suspect]
     Indication: ABDOMINAL PAIN
     Dosage: 10 MG; PO
     Route: 048
     Dates: start: 20061001, end: 20070801
  2. CON MEDS [Concomitant]
  3. PREV MEDS [Concomitant]

REACTIONS (8)
  - DISABILITY [None]
  - DYSKINESIA [None]
  - EXTRAPYRAMIDAL DISORDER [None]
  - MENTAL DISORDER [None]
  - MOVEMENT DISORDER [None]
  - MULTIPLE INJURIES [None]
  - PAIN [None]
  - TARDIVE DYSKINESIA [None]
